FAERS Safety Report 26009202 (Version 2)
Quarter: 2025Q4

REPORT INFORMATION
  Report Type: Report from Study
  Country: CL (occurrence: CL)
  Receive Date: 20251107
  Receipt Date: 20251111
  Transmission Date: 20260117
  Serious: Yes (Other)
  Sender: JOHNSON AND JOHNSON
  Company Number: CL-JNJFOC-20251038987

PATIENT
  Age: 41 Year
  Sex: Male
  Weight: 138 kg

DRUGS (1)
  1. SIMPONI [Suspect]
     Active Substance: GOLIMUMAB
     Indication: Rheumatoid arthritis
     Route: 058
     Dates: start: 20240111

REACTIONS (5)
  - Diverticular perforation [Unknown]
  - Large intestinal haemorrhage [Unknown]
  - Obesity [Unknown]
  - Procedural haemorrhage [Unknown]
  - Stress [Unknown]

NARRATIVE: CASE EVENT DATE: 20251001
